FAERS Safety Report 23645122 (Version 1)
Quarter: 2024Q1

REPORT INFORMATION
  Report Type: Spontaneous
  Country: US (occurrence: US)
  Receive Date: 20240318
  Receipt Date: 20240318
  Transmission Date: 20240409
  Serious: Yes (Other)
  Sender: FDA-Public Use
  Company Number: US-PFIZER INC-202400065164

PATIENT
  Age: 67 Year
  Sex: Female
  Weight: 81.646 kg

DRUGS (1)
  1. CORTEF [Suspect]
     Active Substance: HYDROCORTISONE
     Dosage: 25 MG (TAKES 15MG IN THE MORNING AND 10MG IN THE AFTERNOON BY MOUTH)
     Route: 048

REACTIONS (2)
  - Adrenal insufficiency [Unknown]
  - Neoplasm recurrence [Unknown]
